FAERS Safety Report 8716520 (Version 3)
Quarter: 2012Q4

REPORT INFORMATION
  Report Type: 
  Country: US (occurrence: US)
  Receive Date: 20120810
  Receipt Date: 20121022
  Transmission Date: 20130627
  Serious: Yes (Other)
  Sender: FDA-Public Use
  Company Number: US-PAR PHARMACEUTICAL, INC-2012SCPR004529

PATIENT

DRUGS (4)
  1. CHOLESTYRAMINE [Suspect]
     Indication: IRRITABLE BOWEL SYNDROME
     Dosage: 1 packet per day
     Route: 048
  2. FIBER TABLETS [Concomitant]
     Indication: PRODUCT USED FOR UNKNOWN INDICATION
     Dosage: 2 DF, / day
     Route: 048
  3. PROBIOTIC [Concomitant]
     Indication: PRODUCT USED FOR UNKNOWN INDICATION
     Dosage: 1 DF, / day
     Route: 048
  4. VITAMIN C [Concomitant]
     Indication: PRODUCT USED FOR UNKNOWN INDICATION
     Dosage: 1 DF, / day
     Route: 048

REACTIONS (2)
  - Libido decreased [Recovered/Resolved]
  - Erectile dysfunction [Recovered/Resolved]
